FAERS Safety Report 13164712 (Version 1)
Quarter: 2017Q1

REPORT INFORMATION
  Report Type: Spontaneous
  Country: FR (occurrence: FR)
  Receive Date: 20170130
  Receipt Date: 20170130
  Transmission Date: 20170428
  Serious: Yes (Other)
  Sender: FDA-Public Use
  Company Number: FR-009507513-1701FRA012306

PATIENT
  Sex: Female

DRUGS (1)
  1. NEXPLANON [Suspect]
     Active Substance: ETONOGESTREL
     Dosage: IN HER LEFT ARM
     Route: 059
     Dates: start: 201507

REACTIONS (6)
  - Road traffic accident [Unknown]
  - Migration of implanted drug [Not Recovered/Not Resolved]
  - Complication associated with device [Not Recovered/Not Resolved]
  - Device deployment issue [Not Recovered/Not Resolved]
  - Metrorrhagia [Unknown]
  - Upper limb fracture [Unknown]

NARRATIVE: CASE EVENT DATE: 2016
